FAERS Safety Report 17142381 (Version 1)
Quarter: 2019Q4

REPORT INFORMATION
  Report Type: Spontaneous
  Country: FR (occurrence: FR)
  Receive Date: 20191211
  Receipt Date: 20191211
  Transmission Date: 20200122
  Serious: Yes (Other)
  Sender: FDA-Public Use
  Company Number: FR-JNJFOC-20191213607

PATIENT
  Age: 82 Year
  Sex: Male

DRUGS (1)
  1. XARELTO [Suspect]
     Active Substance: RIVAROXABAN
     Indication: PULMONARY EMBOLISM
     Dosage: 20 MG, QD
     Route: 048
     Dates: start: 201907

REACTIONS (4)
  - Blood creatinine increased [Unknown]
  - Acne [Unknown]
  - Pulmonary embolism [Unknown]
  - Pruritus [Unknown]

NARRATIVE: CASE EVENT DATE: 2019
